FAERS Safety Report 6057705-9 (Version None)
Quarter: 2009Q1

REPORT INFORMATION
  Report Type: 
  Country: None (occurrence: None)
  Receive Date: 20090129
  Receipt Date: 20090123
  Transmission Date: 20090719
  Serious: Yes (Hospitalization)
  Sender: FDA-Public Use
  Company Number: GB-ABBOTT-09P-167-0498957-00

PATIENT
  Age: 72 Year
  Sex: Female

DRUGS (18)
  1. WARFARIN SODIUM [Suspect]
     Indication: DEEP VEIN THROMBOSIS
     Route: 048
  2. WARFARIN SODIUM [Suspect]
     Indication: MIGRAINE
  3. PANTOPRAZOLE [Suspect]
     Indication: MIGRAINE
     Route: 048
  4. CARBAMAZEPINE [Suspect]
     Indication: EPILEPSY
     Route: 048
  5. ANADIN [Suspect]
     Indication: MIGRAINE
     Route: 048
  6. ALENDRONIC ACID [Suspect]
     Indication: OSTEOARTHRITIS
     Route: 048
  7. CALCICHEW [Suspect]
     Indication: OSTEOARTHRITIS
     Route: 048
  8. CODEINE PHOSPHATE [Suspect]
     Indication: MIGRAINE
     Route: 048
  9. CODEINE PHOSPHATE [Suspect]
  10. GAVISCON [Suspect]
     Indication: MIGRAINE
     Route: 048
  11. RISEDRONATE SODIUM [Suspect]
     Indication: OSTEOARTHRITIS
     Route: 048
  12. RISEDRONATE SODIUM [Suspect]
     Indication: MIGRAINE
  13. SERETIDE [Suspect]
     Indication: ASTHMA
     Route: 055
  14. SERETIDE [Suspect]
     Indication: MIGRAINE
  15. VENTOLIN [Suspect]
     Indication: ASTHMA
     Route: 055
  16. VENTOLIN [Suspect]
     Indication: MIGRAINE
  17. ZOLMITRIPTAN [Suspect]
     Indication: MIGRAINE
     Route: 048
  18. ZOLMITRIPTAN [Suspect]

REACTIONS (1)
  - CEREBROVASCULAR ACCIDENT [None]
